FAERS Safety Report 21761521 (Version 1)
Quarter: 2022Q4

REPORT INFORMATION
  Report Type: Spontaneous
  Country: US (occurrence: US)
  Receive Date: 20221221
  Receipt Date: 20221221
  Transmission Date: 20230113
  Serious: Yes (Death, Other)
  Sender: FDA-Public Use
  Company Number: US-BRISTOL-MYERS SQUIBB COMPANY-2022-155837

PATIENT
  Age: 85 Year
  Sex: Female
  Weight: 63.96 kg

DRUGS (1)
  1. POMALYST [Suspect]
     Active Substance: POMALIDOMIDE
     Indication: Plasmacytoma
     Dosage: DAILY FOR 21DAYS
     Route: 048
     Dates: start: 20220301

REACTIONS (2)
  - Death [Fatal]
  - Off label use [Unknown]
